FAERS Safety Report 6010128-0 (Version None)
Quarter: 2008Q4

REPORT INFORMATION
  Report Type: 
  Country: None (occurrence: None)
  Receive Date: 20081217
  Receipt Date: 20081217
  Transmission Date: 20090506
  Serious: No
  Sender: FDA-Public Use
  Company Number: None

PATIENT
  Age: 21 Year
  Sex: Female
  Weight: 58.0604 kg

DRUGS (1)
  1. NUVARING [Suspect]
     Indication: INFERTILITY
     Dosage: ONE RING 21 DAYS ON 7 OFF
     Dates: start: 20080601, end: 20081001

REACTIONS (4)
  - MEDICAL DEVICE COMPLICATION [None]
  - PAIN [None]
  - ULCER [None]
  - VAGINAL EROSION [None]
